FAERS Safety Report 6636108-X (Version None)
Quarter: 2010Q1

REPORT INFORMATION
  Report Type: 
  Country: None (occurrence: None)
  Receive Date: 20100316
  Receipt Date: 20100224
  Transmission Date: 20100710
  Serious: Yes (Other)
  Sender: FDA-Public Use
  Company Number: US-SANOFI-AVENTIS-2010SA011836

PATIENT
  Age: 69 Year
  Sex: Male

DRUGS (5)
  1. PLAVIX [Suspect]
     Route: 065
  2. ASPIRIN [Suspect]
     Route: 065
  3. LOVAZA [Suspect]
     Route: 048
     Dates: start: 20080130, end: 20080131
  4. ATENOLOL [Concomitant]
  5. TRAVATAN [Concomitant]

REACTIONS (5)
  - CEREBROVASCULAR ACCIDENT [None]
  - DRUG INTERACTION [None]
  - DYSGRAPHIA [None]
  - FATIGUE [None]
  - GAIT DISTURBANCE [None]
